FAERS Safety Report 18252660 (Version 1)
Quarter: 2020Q3

REPORT INFORMATION
  Report Type: Spontaneous
  Country: FR (occurrence: FR)
  Receive Date: 20200910
  Receipt Date: 20200910
  Transmission Date: 20201103
  Serious: Yes (Life-Threatening)
  Sender: FDA-Public Use
  Company Number: NVSC2020FR247471

PATIENT
  Age: 62 Year
  Sex: Female
  Weight: 93.5 kg

DRUGS (5)
  1. LORMETAZEPAM [Suspect]
     Active Substance: LORMETAZEPAM
     Indication: POISONING DELIBERATE
     Dosage: 30 DF, ONCE/SINGLE (TOTAL)
     Route: 048
     Dates: start: 20200802, end: 20200802
  2. LORAZEPAM. [Suspect]
     Active Substance: LORAZEPAM
     Indication: POISONING DELIBERATE
     Dosage: 30 DF, ONCE/SINGLE (TOTAL)
     Route: 048
     Dates: start: 20200802, end: 20200802
  3. DEPAMIDE [Suspect]
     Active Substance: VALPROMIDE
     Indication: POISONING DELIBERATE
     Dosage: 60 DF, ONCE/SINGLE (TOTAL)
     Route: 048
     Dates: start: 20200802, end: 20200802
  4. MIANSERIN HYDROCHLORIDE [Suspect]
     Active Substance: MIANSERIN HYDROCHLORIDE
     Indication: POISONING DELIBERATE
     Dosage: 30 DF, ONCE/SINGLE (TOTAL)
     Route: 048
     Dates: start: 20200802, end: 20200802
  5. HYDROXYZINE [Suspect]
     Active Substance: HYDROXYZINE HYDROCHLORIDE
     Indication: POISONING DELIBERATE
     Dosage: 30 DF, ONCE/SINGLE (TOTAL)
     Route: 048
     Dates: start: 20200802, end: 20200802

REACTIONS (1)
  - Coma [Recovered/Resolved]

NARRATIVE: CASE EVENT DATE: 20200802
